FAERS Safety Report 9213237 (Version 2)
Quarter: 2014Q1

REPORT INFORMATION
  Report Type: Spontaneous
  Country: JP (occurrence: JP)
  Receive Date: 20130405
  Receipt Date: 20140327
  Transmission Date: 20141002
  Serious: Yes (Death, Life-Threatening)
  Sender: FDA-Public Use
  Company Number: JP-JNJFOC-20130309995

PATIENT
  Age: 85 Year
  Sex: Male
  Weight: 41 kg

DRUGS (10)
  1. TRAMCET [Suspect]
     Indication: LUMBAR VERTEBRAL FRACTURE
     Dosage: 1 PER 1 DAY
     Route: 048
     Dates: start: 20130308, end: 20130313
  2. JANUVIA [Concomitant]
     Indication: DIABETES MELLITUS
     Route: 048
     Dates: start: 20120306, end: 20130313
  3. PREDNISOLONE [Concomitant]
     Indication: INTERSTITIAL LUNG DISEASE
     Route: 048
     Dates: start: 20120218, end: 20130313
  4. PLAVIX [Concomitant]
     Indication: PRODUCT USED FOR UNKNOWN INDICATION
     Route: 048
     Dates: end: 20130313
  5. METHISTA [Concomitant]
     Indication: PRODUCT USED FOR UNKNOWN INDICATION
     Route: 048
     Dates: end: 20130313
  6. BAYASPIRIN [Concomitant]
     Indication: ANGINA PECTORIS
     Route: 048
     Dates: start: 201103, end: 20130313
  7. CLARITHROMYCIN [Concomitant]
     Indication: PRODUCT USED FOR UNKNOWN INDICATION
     Route: 048
     Dates: end: 20130313
  8. ESTAZOLAM [Concomitant]
     Indication: PRODUCT USED FOR UNKNOWN INDICATION
     Route: 048
     Dates: end: 20130313
  9. ZOPICLONE [Concomitant]
     Indication: PRODUCT USED FOR UNKNOWN INDICATION
     Route: 048
     Dates: end: 20130313
  10. GASTER D [Concomitant]
     Indication: GASTRIC ULCER
     Route: 048
     Dates: end: 20130313

REACTIONS (2)
  - Lung neoplasm malignant [Fatal]
  - Aphagia [Not Recovered/Not Resolved]
